FAERS Safety Report 4337771-9 (Version None)
Quarter: 2004Q2

REPORT INFORMATION
  Report Type: 
  Country: None (occurrence: None)
  Receive Date: 20040408
  Receipt Date: 20040330
  Transmission Date: 20050107
  Serious: Yes (Hospitalization)
  Sender: FDA-Public Use
  Company Number: 2002UW04475

PATIENT
  Age: 51 Year
  Sex: Male

DRUGS (1)
  1. ACCOLATE [Suspect]
     Indication: ASTHMA

REACTIONS (6)
  - ALANINE AMINOTRANSFERASE INCREASED [None]
  - ASPARTATE AMINOTRANSFERASE INCREASED [None]
  - LEUKOCYTOCLASTIC VASCULITIS [None]
  - LIVER FUNCTION TEST ABNORMAL [None]
  - RED BLOOD CELL SEDIMENTATION RATE INCREASED [None]
  - THROMBOCYTOPENIC PURPURA [None]
